FAERS Safety Report 5195216-3 (Version None)
Quarter: 2006Q4

REPORT INFORMATION
  Report Type: 
  Country: None (occurrence: None)
  Receive Date: 20061229
  Receipt Date: 20061023
  Transmission Date: 20070319
  Serious: Yes (Disabling)
  Sender: FDA-Public Use
  Company Number: NL-PFIZER INC-2006131254

PATIENT
  Sex: Female

DRUGS (3)
  1. DEPO-MEDROL [Suspect]
     Indication: BURSITIS
     Dosage: TEXT:40MG/ML-FREQ:ONLY ONCE
     Route: 030
     Dates: start: 20051129, end: 20051129
  2. DICLOFENAC SODIUM [Concomitant]
     Route: 048
  3. OMEPRAZOLE [Concomitant]
     Route: 048

REACTIONS (11)
  - ARRHYTHMIA [None]
  - DISTURBANCE IN ATTENTION [None]
  - DYSPNOEA [None]
  - FLUSHING [None]
  - HYPERHIDROSIS [None]
  - IMPAIRED WORK ABILITY [None]
  - MUSCLE DISORDER [None]
  - PAIN IN EXTREMITY [None]
  - PALPITATIONS [None]
  - ROTATOR CUFF SYNDROME [None]
  - VISION BLURRED [None]
